FAERS Safety Report 9665262 (Version 6)
Quarter: 2013Q4

REPORT INFORMATION
  Report Type: Report from Study
  Country: US (occurrence: US)
  Receive Date: 20131101
  Receipt Date: 20131222
  Transmission Date: 20140711
  Serious: Yes (Hospitalization, Other)
  Sender: FDA-Public Use
  Company Number: PHEH2013US022914

PATIENT
  Age: 62 Year
  Sex: Female

DRUGS (2)
  1. GILENYA [Suspect]
     Indication: MULTIPLE SCLEROSIS RELAPSE
     Dosage: 0.5 MG, QD
     Route: 048
     Dates: start: 20131030, end: 20131031
  2. GILENYA [Suspect]
     Dosage: 0.5 MG, QD
     Route: 048
     Dates: start: 20131106

REACTIONS (6)
  - Electrocardiogram QT prolonged [Recovered/Resolved]
  - Electrocardiogram RR interval prolonged [Unknown]
  - Blood pressure decreased [Recovering/Resolving]
  - Bradycardia [Recovered/Resolved]
  - Fatigue [Recovering/Resolving]
  - Asthenia [Unknown]
